FAERS Safety Report 10426162 (Version 1)
Quarter: 2014Q1

REPORT INFORMATION
  Report Type: Spontaneous
  Country: US (occurrence: None)
  Receive Date: 20130305
  Receipt Date: 20130305
  Transmission Date: 20141002
  Serious: Yes (Hospitalization, Other)
  Sender: FDA-Public Use
  Company Number: 163-21880-11123225

PATIENT
  Age: 70 Year
  Sex: Male

DRUGS (5)
  1. REVLIMID (LENALIDOMIDE) (5 MILLIGRAM, CAPSULES) [Suspect]
     Indication: PLASMA CELL MYELOMA
     Route: 048
     Dates: start: 20111208
  2. ANTI HTN MEDS (ANTIHYPERTENSIVES) [Concomitant]
  3. VELCADE [Concomitant]
  4. DEXAMETHASONE [Concomitant]
  5. ANTIBIOTICS [Concomitant]

REACTIONS (6)
  - Dehydration [None]
  - Orthostatic hypotension [None]
  - Plasma cell myeloma [None]
  - Urinary tract infection [None]
  - Decreased appetite [None]
  - Chronic obstructive pulmonary disease [None]
